FAERS Safety Report 11372701 (Version 1)
Quarter: 2015Q3

REPORT INFORMATION
  Report Type: Spontaneous
  Country: US (occurrence: US)
  Receive Date: 20150811
  Receipt Date: 20150811
  Transmission Date: 20151125
  Serious: No
  Sender: FDA-Public Use
  Company Number: US-ELI_LILLY_AND_COMPANY-US201203007323

PATIENT
  Sex: Male

DRUGS (4)
  1. ZOPIDEM [Concomitant]
  2. AXIRON [Suspect]
     Active Substance: TESTOSTERONE
     Dosage: 120 MG, QD, UNDER EACH ARM,
     Route: 050
     Dates: start: 2011
  3. HYDROCHLOROTHIAZIDE. [Concomitant]
     Active Substance: HYDROCHLOROTHIAZIDE
  4. AXIRON [Suspect]
     Active Substance: TESTOSTERONE
     Indication: BLOOD TESTOSTERONE DECREASED
     Dosage: 60 MG, UNDER EACH ARM, QD
     Route: 050

REACTIONS (6)
  - Weight increased [Unknown]
  - Andropause [Unknown]
  - Libido disorder [Unknown]
  - Lethargy [Unknown]
  - Blood testosterone decreased [Not Recovered/Not Resolved]
  - Alopecia [Unknown]
